FAERS Safety Report 11978143 (Version 2)
Quarter: 2016Q1

REPORT INFORMATION
  Report Type: Report from Study
  Country: US (occurrence: US)
  Receive Date: 20160129
  Receipt Date: 20160203
  Transmission Date: 20160526
  Serious: No
  Sender: FDA-Public Use
  Company Number: US-ABBVIE-15K-163-1411130-00

PATIENT
  Age: 23 Year
  Sex: Female
  Weight: 73.55 kg

DRUGS (2)
  1. HUMIRA [Suspect]
     Active Substance: ADALIMUMAB
     Route: 058
     Dates: start: 20150510
  2. HUMIRA [Suspect]
     Active Substance: ADALIMUMAB
     Indication: PSORIASIS
     Dosage: LOADING DOSE
     Route: 058
     Dates: start: 20150502, end: 20150502

REACTIONS (3)
  - Scratch [Unknown]
  - Pruritus [Not Recovered/Not Resolved]
  - Rash papular [Not Recovered/Not Resolved]

NARRATIVE: CASE EVENT DATE: 201505
